FAERS Safety Report 5592570-5 (Version None)
Quarter: 2008Q1

REPORT INFORMATION
  Report Type: 
  Country: None (occurrence: None)
  Receive Date: 20080111
  Receipt Date: 20071231
  Transmission Date: 20080703
  Serious: Yes (Other)
  Sender: FDA-Public Use
  Company Number: 08H-028-0313658

PATIENT
  Age: 76 Year
  Sex: Female

DRUGS (13)
  1. LIDOCAINE HYDROCHLORIDE [Suspect]
     Indication: LOCAL ANAESTHESIA
     Dosage: 3 ML, LOCAL INFILTRATION
  2. ROPIVACAINE W/ EPINEPHRINE     (GALENIC /ROPIVACAINE/EPINEPHRINE) [Suspect]
     Indication: ANAESTHESIA
     Dosage: 25 ML
  3. FENTANYL [Concomitant]
  4. MIDAZOLAM HCL [Concomitant]
  5. OXYGEN               (OXYGEN) [Concomitant]
  6. THALIDOMIDE [Concomitant]
  7. PAMIDRONATE DISODIUM [Concomitant]
  8. DEXAMETHASONE TAB [Concomitant]
  9. ASPIRIN [Concomitant]
  10. IBUPROFEN [Concomitant]
  11. PAROXETINE HCL [Concomitant]
  12. DOCUSATE              (DOCUSATE) [Concomitant]
  13. D5W             (GLUCOSE INJECTION) [Concomitant]

REACTIONS (3)
  - DRUG INTERACTION [None]
  - GRAND MAL CONVULSION [None]
  - NEUROTOXICITY [None]
